FAERS Safety Report 10955362 (Version 1)
Quarter: 2015Q1

REPORT INFORMATION
  Report Type: Spontaneous
  Country: US (occurrence: None)
  Receive Date: 20150312
  Receipt Date: 20150312
  Transmission Date: 20150721
  Serious: Yes (Other)
  Sender: FDA-Public Use
  Company Number: LIT-035-15-US

PATIENT
  Age: 26 Year
  Sex: Female

DRUGS (4)
  1. METHYLPREDNISONE [Concomitant]
     Active Substance: METHYLPREDNISOLONE
  2. PYRIDOSTIGMINE [Concomitant]
     Active Substance: PYRIDOSTIGMINE
  3. HUMAN NORMAL IMMUNOGLOBULIN (IV) (TRADENAME UNKNOWN) [Suspect]
     Active Substance: HUMAN IMMUNOGLOBULIN G
     Indication: MYASTHENIA GRAVIS
     Route: 042
  4. ANTIBIOTIC [Concomitant]
     Active Substance: UNSPECIFIED INGREDIENT

REACTIONS (4)
  - Respiratory failure [None]
  - Tachypnoea [None]
  - Transfusion-related acute lung injury [None]
  - Pulmonary oedema [None]
